FAERS Safety Report 9454045 (Version 1)
Quarter: 2013Q3

REPORT INFORMATION
  Report Type: Spontaneous
  Country: US (occurrence: US)
  Receive Date: 20130812
  Receipt Date: 20130812
  Transmission Date: 20140515
  Serious: Yes (Hospitalization)
  Sender: FDA-Public Use
  Company Number: US-CUBIST PHARMACEUTICAL, INC.-2013CBST000186

PATIENT
  Age: 36 Year
  Sex: Female
  Weight: 50 kg

DRUGS (4)
  1. CUBICIN [Suspect]
     Indication: INFECTION
     Dosage: 300 MG, Q48H
     Route: 040
  2. CUBICIN [Suspect]
     Indication: OFF LABEL USE
     Dosage: 6 MG/KG, Q48H
  3. CUBICIN [Suspect]
     Dosage: 300 MG, Q24H
     Route: 040
  4. CUBICIN [Suspect]
     Dosage: 6 MG/KG, Q24H

REACTIONS (4)
  - Dehydration [Unknown]
  - Blood creatinine abnormal [Recovering/Resolving]
  - Nausea [Unknown]
  - Vomiting [Unknown]
